FAERS Safety Report 5789309-7 (Version None)
Quarter: 2008Q2

REPORT INFORMATION
  Report Type: 
  Country: None (occurrence: None)
  Receive Date: 20080626
  Receipt Date: 20080620
  Transmission Date: 20081010
  Serious: Yes (Hospitalization)
  Sender: FDA-Public Use
  Company Number: FR-MERCK-0806FRA00062

PATIENT
  Age: 67 Year
  Sex: Female

DRUGS (17)
  1. EMEND [Suspect]
     Indication: PROPHYLAXIS OF NAUSEA AND VOMITING
     Route: 048
     Dates: start: 20080408, end: 20080408
  2. EMEND [Suspect]
     Route: 048
     Dates: start: 20080319, end: 20080320
  3. EMEND [Suspect]
     Route: 048
     Dates: start: 20080212, end: 20080212
  4. EMEND [Suspect]
     Route: 048
     Dates: start: 20080213, end: 20080214
  5. EMEND [Suspect]
     Route: 048
     Dates: start: 20080318, end: 20080318
  6. EMEND [Suspect]
     Route: 048
     Dates: start: 20080409, end: 20080410
  7. FLUOROURACIL [Suspect]
     Indication: BREAST CANCER METASTATIC
     Route: 042
     Dates: start: 20080408, end: 20080411
  8. FLUOROURACIL [Suspect]
     Route: 042
     Dates: start: 20080212, end: 20080215
  9. FLUOROURACIL [Suspect]
     Route: 042
     Dates: start: 20080318, end: 20080321
  10. CISPLATIN [Suspect]
     Indication: BREAST CANCER METASTATIC
     Route: 042
     Dates: start: 20080408, end: 20080409
  11. CISPLATIN [Suspect]
     Route: 042
     Dates: start: 20080212, end: 20080213
  12. CISPLATIN [Suspect]
     Route: 042
     Dates: start: 20080318, end: 20080319
  13. FENOFIBRATE [Concomitant]
     Indication: DYSLIPIDAEMIA
     Route: 048
  14. FOLIC ACID AND IRON (UNSPECIFIED) AND VITAMIN B (UNSPECIFIED) [Concomitant]
     Route: 048
  15. OMEPRAZOLE [Concomitant]
     Route: 048
  16. PEGFILGRASTIM [Concomitant]
     Indication: PROPHYLAXIS
     Route: 058
     Dates: start: 20080320, end: 20080320
  17. PEGFILGRASTIM [Concomitant]
     Route: 058
     Dates: start: 20080410, end: 20080410

REACTIONS (2)
  - FEBRILE BONE MARROW APLASIA [None]
  - PYREXIA [None]
